FAERS Safety Report 9656533 (Version 2)
Quarter: 2013Q4

REPORT INFORMATION
  Report Type: Spontaneous
  Country: US (occurrence: US)
  Receive Date: 20131030
  Receipt Date: 20131030
  Transmission Date: 20140711
  Serious: Yes (Hospitalization, Other)
  Sender: FDA-Public Use
  Company Number: US-009507513-1204USA01797

PATIENT
  Sex: Female
  Weight: 71.66 kg

DRUGS (8)
  1. FOSAMAX [Suspect]
     Indication: OSTEOPENIA
     Dosage: 70 MG, QW
     Route: 048
     Dates: start: 200402
  2. FOSAMAX [Suspect]
     Indication: OSTEOPENIA
     Dosage: UNK
     Route: 048
  3. ALENDRONATE SODIUM [Suspect]
     Dosage: 70 MG, UNK
  4. CHLORDIAZEPOXIDE [Concomitant]
     Indication: ANXIETY
     Dosage: 5 MG, QD PRN
  5. NEURONTIN [Concomitant]
     Indication: SCIATICA
     Dosage: 100 MG, HS
     Dates: start: 20040129
  6. EVISTA [Concomitant]
     Indication: OSTEOPENIA
     Dosage: 60 MG, QD
  7. CELEBREX [Concomitant]
     Indication: ARTHRALGIA
  8. CELEBREX [Concomitant]
     Indication: MUSCULOSKELETAL PAIN

REACTIONS (13)
  - Femur fracture [Unknown]
  - Intramedullary rod insertion [Unknown]
  - Femur fracture [Unknown]
  - Low turnover osteopathy [Unknown]
  - Osteoarthritis [Unknown]
  - Depression [Unknown]
  - Hyperlipidaemia [Unknown]
  - Palpitations [Unknown]
  - Migraine [Unknown]
  - Intervertebral disc degeneration [Unknown]
  - Hysterectomy [Unknown]
  - Back disorder [Unknown]
  - Hand fracture [Unknown]
